FAERS Safety Report 5237204-4 (Version None)
Quarter: 2007Q1

REPORT INFORMATION
  Report Type: 
  Country: None (occurrence: None)
  Receive Date: 20070213
  Receipt Date: 20070202
  Transmission Date: 20070707
  Serious: Yes (Hospitalization)
  Sender: FDA-Public Use
  Company Number: FRWYE414403NOV06

PATIENT
  Age: 23 Year
  Sex: Male
  Weight: 70 kg

DRUGS (5)
  1. EFFEXOR [Suspect]
     Indication: PSYCHOTIC DISORDER
     Dosage: NOT SPECIFIED
     Route: 048
     Dates: start: 20060919, end: 20060927
  2. THERALENE [Suspect]
     Indication: PSYCHOTIC DISORDER
     Route: 048
     Dates: start: 20060919, end: 20060927
  3. TERCIAN [Suspect]
     Indication: PSYCHOTIC DISORDER
     Route: 048
     Dates: start: 20060919, end: 20060927
  4. SOLIAN [Suspect]
     Indication: BRIEF PSYCHOTIC DISORDER WITH MARKED STRESSORS
     Route: 048
     Dates: end: 20060927
  5. SOLIAN [Suspect]
     Route: 048
     Dates: end: 20060101

REACTIONS (12)
  - AGGRESSION [None]
  - AGITATION [None]
  - ALANINE AMINOTRANSFERASE INCREASED [None]
  - ASPARTATE AMINOTRANSFERASE INCREASED [None]
  - DEHYDRATION [None]
  - DELIRIUM [None]
  - DRY MOUTH [None]
  - DRY SKIN [None]
  - HYPERREFLEXIA [None]
  - MYALGIA [None]
  - MYDRIASIS [None]
  - NEUROLEPTIC MALIGNANT SYNDROME [None]
